FAERS Safety Report 6512402-8 (Version None)
Quarter: 2009Q4

REPORT INFORMATION
  Report Type: 
  Country: None (occurrence: None)
  Receive Date: 20091217
  Receipt Date: 20091203
  Transmission Date: 20100525
  Serious: Yes (Hospitalization, Other)
  Sender: FDA-Public Use
  Company Number: THYR-1000236

PATIENT
  Age: 63 Year
  Sex: Male

DRUGS (1)
  1. THYROGEN [Suspect]
     Indication: THERAPEUTIC PROCEDURE
     Dosage: 0.9 MG, QD, INTRAMUSCULAR
     Route: 030
     Dates: start: 20091130, end: 20091201

REACTIONS (12)
  - ALANINE AMINOTRANSFERASE INCREASED [None]
  - ATRIAL FIBRILLATION [None]
  - BLOOD BILIRUBIN INCREASED [None]
  - CARDIAC FAILURE CONGESTIVE [None]
  - HYPERTENSION [None]
  - HYPERTHYROIDISM [None]
  - HYPOTENSION [None]
  - METASTASES TO BONE [None]
  - METASTASES TO LIVER [None]
  - PLEURAL EFFUSION [None]
  - RENAL FAILURE [None]
  - THYROTOXIC CRISIS [None]
